FAERS Safety Report 6366296-4 (Version None)
Quarter: 2009Q3

REPORT INFORMATION
  Report Type: 
  Country: None (occurrence: None)
  Receive Date: 20090915
  Receipt Date: 20090907
  Transmission Date: 20100115
  Serious: Yes (Death)
  Sender: FDA-Public Use
  Company Number: LTI2008A00170

PATIENT
  Age: 56 Year
  Sex: Female

DRUGS (2)
  1. ACTOS [Suspect]
     Indication: DIABETES MELLITUS
     Dosage: UNK.(D);ORAL
     Route: 048
     Dates: start: 20030101, end: 20030101
  2. INSULIN (INSULIN) [Concomitant]

REACTIONS (2)
  - CARDIAC FAILURE [None]
  - WEIGHT INCREASED [None]
